FAERS Safety Report 16897578 (Version 2)
Quarter: 2019Q4

REPORT INFORMATION
  Report Type: Spontaneous
  Country: GB (occurrence: GB)
  Receive Date: 20191009
  Receipt Date: 20191223
  Transmission Date: 20200122
  Serious: Yes (Other)
  Sender: FDA-Public Use
  Company Number: GB-TEVA-2019-GB-1118242

PATIENT
  Age: 57 Year
  Sex: Female
  Weight: 84 kg

DRUGS (7)
  1. DOXYCYCLINE. [Suspect]
     Active Substance: DOXYCYCLINE
     Dosage: TAKE TWO CAPSULES ON DAY 1. THEN TAKE ONE CAPSULE DAILY FROM DAY 2 ONWARDS. 200 MG
     Route: 065
     Dates: start: 20190913, end: 20190913
  2. DOXYCYCLINE. [Suspect]
     Active Substance: DOXYCYCLINE
     Dosage: TAKE TWO CAPSULES ON DAY 1. THEN TAKE ONE CAPSULE DAILY FROM DAY 2 ONWARDS. 100 MG, 1 DAY
     Route: 065
     Dates: start: 20190914
  3. CHLORPHENAMINE [Concomitant]
     Active Substance: CHLORPHENIRAMINE MALEATE
     Dosage: EVERY 4-6 HRS; 1 DF
     Dates: start: 20190916
  4. AMITRIPTYLINE HYDROCHLORIDE. [Concomitant]
     Active Substance: AMITRIPTYLINE HYDROCHLORIDE
     Dosage: AT NIGHT; 1 DF
     Dates: start: 20190913
  5. PREDNISOLONE. [Concomitant]
     Active Substance: PREDNISOLONE
     Dosage: IN A MORNING WITH FOOD; 8 DF
     Dates: start: 20190916
  6. SALBUTAMOL [Concomitant]
     Active Substance: ALBUTEROL
     Dosage: 2 DOSES AS NEEDED; 2 DF
     Route: 055
     Dates: start: 20190916
  7. CLARITHROMYCIN. [Concomitant]
     Active Substance: CLARITHROMYCIN
     Dosage: 1 DF PER 12 HOURS
     Dates: start: 20190916

REACTIONS (1)
  - Rash [Recovering/Resolving]
